FAERS Safety Report 16409472 (Version 1)
Quarter: 2019Q2

REPORT INFORMATION
  Report Type: Spontaneous
  Country: US (occurrence: US)
  Receive Date: 20190610
  Receipt Date: 20190610
  Transmission Date: 20190711
  Serious: No
  Sender: FDA-Public Use
  Company Number: US-PFIZER INC-2019239125

PATIENT
  Age: 67 Year
  Sex: Female
  Weight: 81.65 kg

DRUGS (3)
  1. LYRICA [Suspect]
     Active Substance: PREGABALIN
     Dosage: 75 MG, 2X/DAY (2 OF THE 75 MG TO MAKE UP HER 150 MG)
  2. LYRICA [Suspect]
     Active Substance: PREGABALIN
     Indication: PERIPHERAL NERVE INJURY
     Dosage: 150 MG, 3X/DAY
     Route: 048
     Dates: start: 200812
  3. NORCO [Concomitant]
     Active Substance: ACETAMINOPHEN\HYDROCODONE BITARTRATE
     Indication: PAIN
     Dosage: 1 DF, 2X/DAY (7.5MG/325MG, 1 IN MORNING AND EVENING, BY MOUTH)
     Route: 048
     Dates: start: 2008

REACTIONS (2)
  - Weight increased [Unknown]
  - Incorrect dose administered [Unknown]
